FAERS Safety Report 6039757-5 (Version None)
Quarter: 2009Q1

REPORT INFORMATION
  Report Type: 
  Country: None (occurrence: None)
  Receive Date: 20090116
  Receipt Date: 20090112
  Transmission Date: 20090719
  Serious: Yes (Death, Hospitalization)
  Sender: FDA-Public Use
  Company Number: FR-JNJFOC-20081203062

PATIENT
  Sex: Female

DRUGS (19)
  1. DOXORUBICIN HCL [Suspect]
     Indication: BREAST CANCER METASTATIC
     Route: 042
  2. OXYCODONE HCL [Concomitant]
     Indication: PAIN
     Route: 065
  3. FLUINDIONE [Concomitant]
     Route: 065
  4. PRAVASTATIN [Concomitant]
     Route: 065
  5. ALLOPURINOL [Concomitant]
     Route: 065
  6. PREDNISONE TAB [Concomitant]
     Dosage: FOR 15 DAYS
     Route: 065
  7. PREDNISONE TAB [Concomitant]
     Dosage: FOR 15 DAYS
     Route: 065
  8. ALDACTAZINE [Concomitant]
     Route: 065
  9. ZOLPIDEM [Concomitant]
     Route: 065
  10. PYRIDOXINE HCL [Concomitant]
     Route: 065
  11. UNSPECIFIED LOW-MOLECULAR WEIGHT HEPARIN [Concomitant]
     Route: 065
  12. HYDROMORPHONE HCL [Concomitant]
     Route: 065
  13. PREGABALIN [Concomitant]
     Route: 065
  14. ATENOLOL [Concomitant]
     Route: 065
  15. FERROUS SULFATE TAB [Concomitant]
     Route: 065
  16. FOLIC ACID [Concomitant]
     Route: 065
  17. ESOMEPRAZOLE [Concomitant]
     Route: 065
  18. CLODRONATE [Concomitant]
     Route: 065
  19. ZOLEDRONIC ACID [Concomitant]
     Dosage: EVERY 28 DAYS
     Route: 065

REACTIONS (9)
  - ANAEMIA [None]
  - ANOREXIA [None]
  - BACK PAIN [None]
  - GENERAL PHYSICAL HEALTH DETERIORATION [None]
  - NEUTROPENIA [None]
  - PARAESTHESIA [None]
  - PYREXIA [None]
  - SEPTIC SHOCK [None]
  - THROMBOCYTOPENIA [None]
